FAERS Safety Report 10048289 (Version 2)
Quarter: 2014Q1

REPORT INFORMATION
  Report Type: Spontaneous
  Country: US (occurrence: US)
  Receive Date: 20140331
  Receipt Date: 20140331
  Transmission Date: 20141002
  Serious: Yes (Hospitalization)
  Sender: FDA-Public Use
  Company Number: US-GLAXOSMITHKLINE-A0870678A

PATIENT
  Age: 59 Year
  Sex: Female
  Weight: 80.9 kg

DRUGS (14)
  1. AVANDIA [Suspect]
     Indication: TYPE 2 DIABETES MELLITUS
     Dosage: 4MG PER DAY
     Route: 048
     Dates: start: 1999, end: 200705
  2. INSULIN [Concomitant]
  3. ZESTRIL [Concomitant]
  4. COZAAR [Concomitant]
  5. ZANTAC [Concomitant]
  6. LOPRESSOR [Concomitant]
  7. NEXIUM [Concomitant]
  8. PLAVIX [Concomitant]
  9. ASPIRIN [Concomitant]
  10. PRILOSEC [Concomitant]
  11. LASIX [Concomitant]
  12. NITRODUR [Concomitant]
  13. NITROGLYCERIN [Concomitant]
  14. REGLAN [Concomitant]

REACTIONS (4)
  - Myocardial infarction [Not Recovered/Not Resolved]
  - Angina pectoris [Unknown]
  - Cardiac failure congestive [Unknown]
  - Coronary artery disease [Unknown]
